FAERS Safety Report 20746364 (Version 1)
Quarter: 2022Q2

REPORT INFORMATION
  Report Type: Spontaneous
  Country: BR (occurrence: BR)
  Receive Date: 20220425
  Receipt Date: 20220425
  Transmission Date: 20220720
  Serious: Yes (Hospitalization, Other)
  Sender: FDA-Public Use
  Company Number: BR-BRISTOL-MYERS SQUIBB COMPANY-2022-025739

PATIENT

DRUGS (2)
  1. NIVOLUMAB [Suspect]
     Active Substance: NIVOLUMAB
     Indication: Malignant melanoma
     Dosage: DOSE : NIVO UNAVAILABLE; IPI 1MG/KG;     FREQ : UNAVAILABLE
     Route: 042
  2. IPILIMUMAB [Suspect]
     Active Substance: IPILIMUMAB
     Indication: Malignant melanoma
     Route: 042

REACTIONS (2)
  - Toxic epidermal necrolysis [Unknown]
  - Off label use [Unknown]
